FAERS Safety Report 23537875 (Version 2)
Quarter: 2025Q1

REPORT INFORMATION
  Report Type: Report from Study
  Country: US (occurrence: US)
  Receive Date: 20240219
  Receipt Date: 20250124
  Transmission Date: 20250408
  Serious: No
  Sender: TAKEDA
  Company Number: US-TAKEDA-2024TUS015335

PATIENT
  Sex: Female
  Weight: 196.83 kg

DRUGS (14)
  1. HUMAN IMMUNOGLOBULIN G [Suspect]
     Active Substance: HUMAN IMMUNOGLOBULIN G
     Indication: Myopathy
  2. HUMAN IMMUNOGLOBULIN G [Suspect]
     Active Substance: HUMAN IMMUNOGLOBULIN G
     Indication: Dermatomyositis
     Dosage: 50 GRAM, Q4WEEKS
     Dates: start: 20240119
  3. LEVOMEFOLIC ACID [Concomitant]
     Active Substance: LEVOMEFOLIC ACID
  4. PRASTERONE [Concomitant]
     Active Substance: PRASTERONE
  5. PREDNISONE [Concomitant]
     Active Substance: PREDNISONE
  6. MAGNESIUM [Concomitant]
     Active Substance: MAGNESIUM
  7. COENZYME Q10 [Concomitant]
     Active Substance: DIETARY SUPPLEMENT\UBIDECARENONE
  8. N acetyl l cysteine [Concomitant]
  9. UNSPECIFIED INGREDIENT [Concomitant]
     Active Substance: UNSPECIFIED INGREDIENT
  10. MYFORTIC [Concomitant]
     Active Substance: MYCOPHENOLATE SODIUM
  11. ACTIVATED CHARCOAL [Concomitant]
     Active Substance: ACTIVATED CHARCOAL
  12. HYDROCHLOROTHIAZIDE [Concomitant]
     Active Substance: HYDROCHLOROTHIAZIDE
  13. NALTREX [Concomitant]
  14. VITAMIN D3 [Concomitant]
     Active Substance: CHOLECALCIFEROL

REACTIONS (4)
  - Heavy menstrual bleeding [Unknown]
  - Off label use [Unknown]
  - Musculoskeletal stiffness [Unknown]
  - Headache [Unknown]
